FAERS Safety Report 16962791 (Version 3)
Quarter: 2019Q4

REPORT INFORMATION
  Report Type: Report from Study
  Country: US (occurrence: US)
  Receive Date: 20191025
  Receipt Date: 20191105
  Transmission Date: 20200122
  Serious: Yes (Hospitalization)
  Sender: FDA-Public Use
  Company Number: US-TAKEDA-2019TUS060085

PATIENT
  Sex: Male

DRUGS (15)
  1. NORVASC [Concomitant]
     Active Substance: AMLODIPINE BESYLATE
     Dosage: UNK
  2. FOLIC ACID. [Concomitant]
     Active Substance: FOLIC ACID
     Dosage: UNK
  3. TYLENOL [Concomitant]
     Active Substance: ACETAMINOPHEN
     Dosage: UNK
  4. WARFARIN [Concomitant]
     Active Substance: WARFARIN
     Dosage: UNK
  5. VITAMIN B12 [Concomitant]
     Active Substance: CYANOCOBALAMIN
     Dosage: UNK
  6. CALMOSEPTINE                       /00156514/ [Concomitant]
     Dosage: UNK
  7. IMURAN [Concomitant]
     Active Substance: AZATHIOPRINE
     Dosage: UNK
  8. VITAMIN D3 [Concomitant]
     Active Substance: CHOLECALCIFEROL
     Dosage: UNK
  9. IRON [Concomitant]
     Active Substance: IRON
     Dosage: UNK
  10. TRULICITY [Concomitant]
     Active Substance: DULAGLUTIDE
     Dosage: UNK
  11. INFLIXIMAB [Concomitant]
     Active Substance: INFLIXIMAB
     Dosage: UNK
     Dates: start: 20161128
  12. ZESTRIL [Concomitant]
     Active Substance: LISINOPRIL
     Dosage: UNK
  13. LOMOTIL [Concomitant]
     Active Substance: ATROPINE SULFATE\DIPHENOXYLATE HYDROCHLORIDE
     Dosage: UNK
  14. VEDOLIZUMAB [Suspect]
     Active Substance: VEDOLIZUMAB
     Indication: INFLAMMATORY BOWEL DISEASE
     Dosage: UNK
     Route: 042
     Dates: start: 20160419, end: 20160920
  15. TRICOR                             /00090101/ [Concomitant]
     Active Substance: ADENOSINE
     Dosage: UNK

REACTIONS (1)
  - Nephrolithiasis [Recovered/Resolved]

NARRATIVE: CASE EVENT DATE: 20190712
